FAERS Safety Report 25333978 (Version 1)
Quarter: 2025Q2

REPORT INFORMATION
  Report Type: Report from Study
  Country: NL (occurrence: NL)
  Receive Date: 20250520
  Receipt Date: 20250520
  Transmission Date: 20250716
  Serious: Yes (Other)
  Sender: RANBAXY
  Company Number: NL-SUN PHARMACEUTICAL INDUSTRIES LTD-2025R1-507723

PATIENT
  Age: 62 Year
  Sex: Male

DRUGS (2)
  1. AMIODARONE [Suspect]
     Active Substance: AMIODARONE
     Indication: Cardiomyopathy
     Dosage: 200 MILLIGRAM, DAILY
     Route: 065
  2. BISOPROLOL [Suspect]
     Active Substance: BISOPROLOL
     Indication: Cardiomyopathy
     Dosage: 10 MILLIGRAM, DAILY
     Route: 065

REACTIONS (1)
  - Disease recurrence [Unknown]
